FAERS Safety Report 9851631 (Version 1)
Quarter: 2014Q1

REPORT INFORMATION
  Report Type: Spontaneous
  Country: GB (occurrence: GB)
  Receive Date: 20140129
  Receipt Date: 20140129
  Transmission Date: 20141002
  Serious: Yes (Disabling, Other)
  Sender: FDA-Public Use
  Company Number: GB-009507513-1401GBR011670

PATIENT
  Sex: Male

DRUGS (4)
  1. EZETIMIBE [Suspect]
     Dosage: 10 MG, 1/1 DAY
     Route: 048
     Dates: start: 200710, end: 200806
  2. ASPIRIN [Concomitant]
     Dosage: 75 MG, UNK
  3. NICORANDIL [Concomitant]
     Dosage: 10 MG, 2/1 DAY
     Route: 048
  4. VERAPAMIL [Concomitant]
     Dosage: 80 MG, UNK
     Route: 048

REACTIONS (4)
  - Motor neurone disease [Not Recovered/Not Resolved]
  - Motor dysfunction [Not Recovered/Not Resolved]
  - Myopathy [Not Recovered/Not Resolved]
  - Rhabdomyolysis [Not Recovered/Not Resolved]
